FAERS Safety Report 6196721-3 (Version None)
Quarter: 2009Q2

REPORT INFORMATION
  Report Type: 
  Country: None (occurrence: None)
  Receive Date: 20090520
  Receipt Date: 20090515
  Transmission Date: 20091009
  Serious: Yes (Hospitalization)
  Sender: FDA-Public Use
  Company Number: US-MERCK-0905USA00977

PATIENT
  Age: 73 Year
  Sex: Male

DRUGS (1)
  1. PRIMAXIN [Suspect]
     Indication: CHOLECYSTITIS ACUTE
     Route: 042
     Dates: start: 20090428, end: 20090504

REACTIONS (1)
  - NEUROTOXICITY [None]
